FAERS Safety Report 21809983 (Version 3)
Quarter: 2023Q4

REPORT INFORMATION
  Report Type: Spontaneous
  Country: DE (occurrence: DE)
  Receive Date: 20230103
  Receipt Date: 20231211
  Transmission Date: 20240110
  Serious: Yes (Hospitalization, Other)
  Sender: FDA-Public Use
  Company Number: DE-Accord-293903

PATIENT
  Age: 46 Year
  Sex: Male

DRUGS (1)
  1. FINGOLIMOD [Suspect]
     Active Substance: FINGOLIMOD
     Indication: Relapsing-remitting multiple sclerosis
     Dosage: LONG-TERM
     Dates: end: 202208

REACTIONS (8)
  - Monkeypox [Recovered/Resolved]
  - Lymphopenia [Recovered/Resolved]
  - Proctitis [Recovering/Resolving]
  - Gastrointestinal haemorrhage [Recovering/Resolving]
  - Hyperbilirubinaemia [Recovering/Resolving]
  - Urinary retention [Recovering/Resolving]
  - Haematuria [Recovering/Resolving]
  - Leukopenia [Recovering/Resolving]
